FAERS Safety Report 6787283-8 (Version None)
Quarter: 2010Q2

REPORT INFORMATION
  Report Type: 
  Country: None (occurrence: None)
  Receive Date: 20100623
  Receipt Date: 20100611
  Transmission Date: 20101027
  Serious: Yes (Hospitalization)
  Sender: FDA-Public Use
  Company Number: US-JNJCH-2010011744

PATIENT
  Age: 4 Year
  Sex: Female
  Weight: 16.8 kg

DRUGS (2)
  1. CHILDREN'S BENADRYL ALLERGY [Suspect]
     Indication: HYPERSENSITIVITY
     Dosage: TEXT:8ML AS NEEDED
     Route: 048
  2. CHILDREN'S ZYRTEC ALLERGY [Suspect]
     Indication: HYPERSENSITIVITY
     Dosage: TEXT:DAILY
     Route: 048

REACTIONS (3)
  - DRUG INEFFECTIVE [None]
  - HYPERSENSITIVITY [None]
  - PRODUCT QUALITY ISSUE [None]
